FAERS Safety Report 22346838 (Version 1)
Quarter: 2023Q2

REPORT INFORMATION
  Report Type: Spontaneous
  Country: FR (occurrence: FR)
  Receive Date: 20230520
  Receipt Date: 20230520
  Transmission Date: 20230721
  Serious: Yes (Hospitalization)
  Sender: FDA-Public Use
  Company Number: None

PATIENT
  Age: 81 Year
  Sex: Female

DRUGS (4)
  1. LETROZOLE [Suspect]
     Active Substance: LETROZOLE
     Indication: Breast cancer
     Dosage: 2.5 MG, QD, (2,5 MG/J)
     Route: 048
     Dates: start: 201910, end: 202302
  2. IBRANCE [Suspect]
     Active Substance: PALBOCICLIB
     Indication: Breast cancer
     Dosage: 125 MG, QD, (125 MG/J 3 SEMAINES SUR 4)
     Route: 048
     Dates: start: 201910, end: 201911
  3. IBRANCE [Suspect]
     Active Substance: PALBOCICLIB
     Dosage: 100 MG, (100 MG/J 3 SEMAINES SUR 4)
     Route: 048
     Dates: start: 201911, end: 202212
  4. IBRANCE [Suspect]
     Active Substance: PALBOCICLIB
     Dosage: 75 MG, (75 MG/J 3 SEMAINES SUR 4)
     Route: 048
     Dates: start: 202212, end: 202302

REACTIONS (2)
  - Delusion [Not Recovered/Not Resolved]
  - Mixed anxiety and depressive disorder [Not Recovered/Not Resolved]

NARRATIVE: CASE EVENT DATE: 20230401
